FAERS Safety Report 25872644 (Version 3)
Quarter: 2025Q4

REPORT INFORMATION
  Report Type: Spontaneous
  Country: US (occurrence: US)
  Receive Date: 20251002
  Receipt Date: 20251117
  Transmission Date: 20260117
  Serious: Yes (Other)
  Sender: CELLTRION
  Company Number: US-CELLTRION INC.-2025US035203

PATIENT

DRUGS (3)
  1. INFLIXIMAB [Interacting]
     Active Substance: INFLIXIMAB
     Indication: Dermatomyositis
     Dosage: UNK
     Route: 065
  2. XELJANZ XR [Interacting]
     Active Substance: TOFACITINIB CITRATE
     Indication: Dermatomyositis
     Dosage: BID
     Route: 065
  3. PENTOXIFYLLINE [Concomitant]
     Active Substance: PENTOXIFYLLINE
     Dosage: UNK
     Route: 065

REACTIONS (6)
  - Dermatomyositis [Unknown]
  - Thrombocytopenia [Unknown]
  - Drug interaction [Unknown]
  - Adverse reaction [Unknown]
  - Treatment delayed [Unknown]
  - Off label use [Unknown]
